FAERS Safety Report 9130895 (Version 1)
Quarter: 2013Q1

REPORT INFORMATION
  Report Type: Spontaneous
  Country: US (occurrence: US)
  Receive Date: 20130301
  Receipt Date: 20130301
  Transmission Date: 20140127
  Serious: No
  Sender: FDA-Public Use
  Company Number: US-MYLANLABS-2012S1003294

PATIENT
  Age: 68 Year
  Sex: Female

DRUGS (3)
  1. METOPROLOL TARTRATE TABLETS, USP [Suspect]
     Indication: ARRHYTHMIA
     Route: 048
     Dates: start: 201104, end: 201203
  2. METOPROLOL TARTRATE TABLETS, USP [Suspect]
     Indication: BLOOD PRESSURE INCREASED
     Route: 048
     Dates: start: 201104, end: 201203
  3. AMBIEN [Concomitant]
     Indication: INSOMNIA
     Route: 048

REACTIONS (1)
  - Spider vein [Recovered/Resolved]
